FAERS Safety Report 7311356-4 (Version None)
Quarter: 2011Q1

REPORT INFORMATION
  Report Type: 
  Country: None (occurrence: None)
  Receive Date: 20110224
  Receipt Date: 20110214
  Transmission Date: 20110831
  Serious: Yes (Other)
  Sender: FDA-Public Use
  Company Number: US-MYLANLABS-2011S1001394

PATIENT
  Age: 58 Year
  Sex: Female
  Weight: 68.95 kg

DRUGS (14)
  1. FENTANYL-100 [Suspect]
     Indication: BACK PAIN
     Dosage: CHANGED Q72H
     Route: 062
     Dates: start: 20100901, end: 20110113
  2. CRESTOR [Concomitant]
  3. NAMENDA [Concomitant]
  4. PHENYTOIN [Concomitant]
  5. TARKA [Concomitant]
  6. ISOSORBID MONONITRATE [Concomitant]
  7. SEROQUEL [Concomitant]
  8. TALACEN [Concomitant]
  9. ARICEPT [Concomitant]
  10. NEURONTIN [Concomitant]
  11. LEVOTHROID [Concomitant]
  12. PROVENTIL [Concomitant]
  13. BACLOFEN [Concomitant]
  14. EFFEXOR [Concomitant]

REACTIONS (4)
  - AMNESIA [None]
  - ABNORMAL BEHAVIOUR [None]
  - LOSS OF CONSCIOUSNESS [None]
  - FEELING ABNORMAL [None]
